FAERS Safety Report 9565401 (Version 1)
Quarter: 2013Q3

REPORT INFORMATION
  Report Type: Spontaneous
  Country: ES (occurrence: ES)
  Receive Date: 20130930
  Receipt Date: 20130930
  Transmission Date: 20140515
  Serious: Yes (Hospitalization)
  Sender: FDA-Public Use
  Company Number: ES-PFIZER INC-2013276305

PATIENT
  Age: 52 Year
  Sex: Male

DRUGS (8)
  1. TYGACIL [Suspect]
     Indication: SOFT TISSUE INFECTION
     Dosage: 50 MG, 2X/DAY
     Route: 042
     Dates: start: 20121031, end: 20121113
  2. PANTOPRAZOLE [Concomitant]
     Indication: PROPHYLAXIS
     Dosage: 40 MG, 1X/DAY
     Route: 042
     Dates: start: 20120910
  3. TRAMADOL [Concomitant]
     Indication: PAIN
     Dosage: 50 MG, 3X/DAY
     Route: 042
     Dates: start: 20121029
  4. ESCITALOPRAM [Concomitant]
     Indication: DEPRESSION
     Dosage: 15 MG, 1X/DAY
     Route: 048
     Dates: start: 20121022
  5. HIBOR [Concomitant]
     Indication: THROMBOSIS PROPHYLAXIS
     Dosage: 3500 IU, 1X/DAY
     Route: 058
     Dates: start: 20120910
  6. NOLOTIL /SPA/ [Concomitant]
     Indication: PAIN
     Dosage: 2 G, 3X/DAY
     Route: 042
     Dates: start: 20121029
  7. PERFALGAN [Concomitant]
     Indication: PAIN
     Dosage: 1 G, 4X/DAY
     Route: 042
     Dates: start: 20121029
  8. ZOFRAN [Concomitant]
     Indication: VOMITING
     Dosage: 8 MG, 3X/DAY
     Route: 042
     Dates: start: 20121029

REACTIONS (1)
  - Hepatitis cholestatic [Recovered/Resolved]
